FAERS Safety Report 18777460 (Version 4)
Quarter: 2021Q3

REPORT INFORMATION
  Report Type: Spontaneous
  Country: US (occurrence: US)
  Receive Date: 20210122
  Receipt Date: 20210809
  Transmission Date: 20211014
  Serious: No
  Sender: FDA-Public Use
  Company Number: US-PFIZER INC-2020387508

PATIENT
  Age: 69 Year
  Sex: Female

DRUGS (4)
  1. IBRANCE [Suspect]
     Active Substance: PALBOCICLIB
     Dosage: 100 MG (FIVE DAYS A WEEK )
  2. IBRANCE [Suspect]
     Active Substance: PALBOCICLIB
     Indication: BREAST CANCER FEMALE
     Dosage: 125 MG
  3. IBRANCE [Suspect]
     Active Substance: PALBOCICLIB
     Dosage: 150 MG
  4. IBRANCE [Suspect]
     Active Substance: PALBOCICLIB
     Dosage: 100 MG, CYCLIC (QD (ONCE A DAY) FOR 21 DAYS OFF 7 DAYS)

REACTIONS (11)
  - Anaemia [Unknown]
  - Neutrophil count decreased [Recovering/Resolving]
  - Blood count abnormal [Recovering/Resolving]
  - Blood folate decreased [Unknown]
  - Vitamin B12 decreased [Recovering/Resolving]
  - White blood cell count decreased [Unknown]
  - Weight decreased [Recovering/Resolving]
  - Off label use [Unknown]
  - Fatigue [Unknown]
  - Feeling abnormal [Unknown]
  - Red blood cell count decreased [Unknown]

NARRATIVE: CASE EVENT DATE: 20210428
